FAERS Safety Report 6417524-8 (Version None)
Quarter: 2009Q4

REPORT INFORMATION
  Report Type: 
  Country: None (occurrence: None)
  Receive Date: 20091026
  Receipt Date: 20091015
  Transmission Date: 20100525
  Serious: Yes (Disabling)
  Sender: FDA-Public Use
  Company Number: OSCN-NO-0910S-0470

PATIENT
  Age: 50 Year
  Sex: Male

DRUGS (1)
  1. OMNISCAN [Suspect]
     Indication: DRUG USE FOR UNKNOWN INDICATION
     Dosage: NR, SINGLE DOSE
     Dates: start: 20030808, end: 20030808

REACTIONS (27)
  - ALTERED STATE OF CONSCIOUSNESS [None]
  - AMPUTATION [None]
  - ARTHRALGIA [None]
  - ASTHENIA [None]
  - BACK PAIN [None]
  - BACTERIAL INFECTION [None]
  - DECUBITUS ULCER [None]
  - DEVICE OCCLUSION [None]
  - DIZZINESS [None]
  - FATIGUE [None]
  - GENERAL PHYSICAL HEALTH DETERIORATION [None]
  - GOUT [None]
  - JOINT RANGE OF MOTION DECREASED [None]
  - MUSCLE SPASMS [None]
  - NECROSIS [None]
  - NEPHROGENIC ANAEMIA [None]
  - OEDEMA PERIPHERAL [None]
  - PAIN [None]
  - PAIN IN EXTREMITY [None]
  - PARAESTHESIA [None]
  - PERIPHERAL ISCHAEMIA [None]
  - PNEUMONIA [None]
  - RENAL FAILURE CHRONIC [None]
  - SKIN DISCOLOURATION [None]
  - SKIN HAEMORRHAGE [None]
  - SURGICAL PROCEDURE REPEATED [None]
  - WOUND COMPLICATION [None]
